FAERS Safety Report 6526987-9 (Version None)
Quarter: 2010Q1

REPORT INFORMATION
  Report Type: 
  Country: None (occurrence: None)
  Receive Date: 20100105
  Receipt Date: 20091228
  Transmission Date: 20100710
  Serious: Yes (Other)
  Sender: FDA-Public Use
  Company Number: CO-PFIZER INC-2009315541

PATIENT
  Age: 10 Year
  Sex: Female

DRUGS (1)
  1. GENOTROPIN [Suspect]
     Dosage: 1 MG, 1X/DAY
     Dates: start: 20091017

REACTIONS (7)
  - ASTHENIA [None]
  - DECREASED APPETITE [None]
  - INFLAMMATION [None]
  - NECK MASS [None]
  - SOMNOLENCE [None]
  - TONSILLITIS [None]
  - WEIGHT DECREASED [None]
